FAERS Safety Report 17516733 (Version 1)
Quarter: 2020Q1

REPORT INFORMATION
  Report Type: Spontaneous
  Country: US (occurrence: US)
  Receive Date: 20200227
  Receipt Date: 20200227
  Transmission Date: 20200409
  Serious: No
  Sender: FDA-Public Use
  Company Number: None

PATIENT
  Age: 58 Year
  Sex: Female
  Weight: 136.53 kg

DRUGS (1)
  1. HIZENTRA [Suspect]
     Active Substance: HUMAN IMMUNOGLOBULIN G
     Indication: SECONDARY IMMUNODEFICIENCY
     Route: 058
     Dates: start: 20181223, end: 20200104

REACTIONS (5)
  - Hypoaesthesia [None]
  - Infusion related reaction [None]
  - Hypoaesthesia oral [None]
  - Blood pressure increased [None]
  - Tremor [None]

NARRATIVE: CASE EVENT DATE: 20200104
